FAERS Safety Report 14789196 (Version 1)
Quarter: 2018Q2

REPORT INFORMATION
  Report Type: Spontaneous
  Country: US (occurrence: US)
  Receive Date: 20180413
  Receipt Date: 20180413
  Transmission Date: 20180711
  Serious: No
  Sender: FDA-Public Use
  Company Number: None

PATIENT
  Age: 60 Year
  Sex: Male
  Weight: 99 kg

DRUGS (2)
  1. ADCIRCA [Suspect]
     Active Substance: TADALAFIL
     Indication: ERECTILE DYSFUNCTION
     Dosage: ?          QUANTITY:18 TABLET(S);?
     Route: 048
  2. CIALIS [Concomitant]
     Active Substance: TADALAFIL

REACTIONS (1)
  - Intercepted drug dispensing error [None]

NARRATIVE: CASE EVENT DATE: 20180404
